FAERS Safety Report 5608647-1 (Version None)
Quarter: 2008Q1

REPORT INFORMATION
  Report Type: 
  Country: None (occurrence: None)
  Receive Date: 20080130
  Receipt Date: 20080122
  Transmission Date: 20080703
  Serious: Yes (Hospitalization)
  Sender: FDA-Public Use
  Company Number: US-PFIZER INC-2008006772

PATIENT
  Sex: Male
  Weight: 108 kg

DRUGS (3)
  1. ZINECARD [Suspect]
     Indication: EXTRAVASATION
     Route: 042
     Dates: start: 20071203, end: 20071203
  2. DEXRAZOXANE [Suspect]
     Indication: EXTRAVASATION
     Route: 042
     Dates: start: 20071204, end: 20071204
  3. DEXRAZOXANE [Suspect]
     Route: 042
     Dates: start: 20071205, end: 20071205

REACTIONS (2)
  - DEHYDRATION [None]
  - GENERALISED ERYTHEMA [None]
